FAERS Safety Report 22176162 (Version 3)
Quarter: 2023Q2

REPORT INFORMATION
  Report Type: Spontaneous
  Country: JP (occurrence: JP)
  Receive Date: 20230405
  Receipt Date: 20230418
  Transmission Date: 20230721
  Serious: Yes (Life-Threatening, Other)
  Sender: FDA-Public Use
  Company Number: JP-PFIZER INC-PV202300059304

PATIENT
  Age: 79 Year
  Sex: Male

DRUGS (5)
  1. METHYLPREDNISOLONE SODIUM SUCCINATE [Suspect]
     Active Substance: METHYLPREDNISOLONE SODIUM SUCCINATE
     Indication: COVID-19 pneumonia
     Dosage: 1000 MG, DAILY
     Route: 042
  2. HEPARIN [Suspect]
     Active Substance: HEPARIN SODIUM
     Indication: COVID-19 pneumonia
     Dosage: 5000 UNITS, 2X/DAY
     Route: 058
  3. REMDESIVIR [Suspect]
     Active Substance: REMDESIVIR
     Indication: COVID-19 pneumonia
     Dosage: 200 MG
     Route: 042
  4. REMDESIVIR [Suspect]
     Active Substance: REMDESIVIR
     Dosage: 100 MG, DAILY
     Route: 042
  5. PREDNISOLONE [Suspect]
     Active Substance: PREDNISOLONE
     Indication: COVID-19 pneumonia
     Dosage: 50 MG, DAILY (HIGH-DOSE)
     Route: 048

REACTIONS (4)
  - Haematoma muscle [Unknown]
  - Femoral nerve palsy [Unknown]
  - Hepatic function abnormal [Unknown]
  - Off label use [Unknown]
